FAERS Safety Report 9523874 (Version 1)
Quarter: 2013Q1

REPORT INFORMATION
  Report Type: Spontaneous
  Country: US (occurrence: None)
  Receive Date: 20130305
  Receipt Date: 20130305
  Transmission Date: 20140127
  Serious: Yes (Other)
  Sender: FDA-Public Use
  Company Number: 163-21880-12020438

PATIENT
  Age: 84 Year
  Sex: Male

DRUGS (7)
  1. REVLIMID [Suspect]
     Indication: MYELODYSPLASTIC SYNDROME
     Route: 048
     Dates: start: 20111229
  2. LISINOPRIL(LISINOPRIL)(UNKNOWN) [Concomitant]
  3. BUMETANIDE(BUMETANIDE)(UNKNOWN) [Concomitant]
  4. GLIPIZIDE(GLIPIZIDE)(UNKNOWN) [Concomitant]
  5. PRAVASTATIN(PRAVASTATIN)(UNKNOWN) [Concomitant]
  6. TAMSULOSIN(TAMSULOSIN)(UNKNOWN) [Concomitant]
  7. RANITIDINE(RANITIDINE)(UNKNOWN) [Concomitant]

REACTIONS (2)
  - Neutropenia [None]
  - Thrombocytopenia [None]
